FAERS Safety Report 13288443 (Version 7)
Quarter: 2018Q4

REPORT INFORMATION
  Report Type: Report from Study
  Country: US (occurrence: US)
  Receive Date: 20170302
  Receipt Date: 20181015
  Transmission Date: 20190204
  Serious: Yes (Hospitalization)
  Sender: FDA-Public Use
  Company Number: US-ACTELION-A-US2015-129014

PATIENT
  Age: 76 Year
  Sex: Female
  Weight: 43.84 kg

DRUGS (28)
  1. OPSUMIT [Suspect]
     Active Substance: MACITENTAN
     Indication: PULMONARY ARTERIAL HYPERTENSION
     Dosage: 10 MG, QD
     Route: 048
     Dates: start: 20150929, end: 20170222
  2. DEXLANSOPRAZOLE [Concomitant]
     Active Substance: DEXLANSOPRAZOLE
     Dosage: UNK
     Dates: start: 20160808
  3. SYSTANE (HYPROMELLOSE 2910 (4000 MPA.S)) [Concomitant]
     Active Substance: HYPROMELLOSE 2910 (4000 MPA.S)
     Dosage: UNK
     Dates: start: 20160808
  4. VELETRI [Suspect]
     Active Substance: EPOPROSTENOL
     Dosage: 15 NG/KG, PER MIN
     Route: 042
     Dates: start: 20160504
  5. IRON [Concomitant]
     Active Substance: IRON
  6. TRIMETHOPRIM. [Concomitant]
     Active Substance: TRIMETHOPRIM
     Dosage: UNK
     Dates: start: 20160808
  7. AMBRISENTAN [Concomitant]
     Active Substance: AMBRISENTAN
     Dosage: UNK
     Dates: start: 20170216
  8. BUDESONIDE. [Concomitant]
     Active Substance: BUDESONIDE
     Dosage: UNK
     Dates: start: 20160808
  9. ACETAMINOPHEN. [Concomitant]
     Active Substance: ACETAMINOPHEN
     Dosage: UNK
     Dates: start: 20160808
  10. ALLOPURINOL. [Concomitant]
     Active Substance: ALLOPURINOL
     Dosage: UNK
     Dates: start: 20160808
  11. FORMOTEROL [Concomitant]
     Active Substance: FORMOTEROL
     Dosage: UNK
     Dates: start: 20160808
  12. ESTRADIOL. [Concomitant]
     Active Substance: ESTRADIOL
     Dosage: UNK
     Dates: start: 20160808
  13. FLUTICASONE. [Concomitant]
     Active Substance: FLUTICASONE
  14. TRACLEER [Concomitant]
     Active Substance: BOSENTAN
     Indication: PULMONARY ARTERIAL HYPERTENSION
     Dosage: UNK
     Route: 048
     Dates: start: 20170216
  15. OMEPRAZOLE. [Concomitant]
     Active Substance: OMEPRAZOLE
     Dosage: UNK
     Dates: start: 20160808
  16. ONDANSETRON [Concomitant]
     Active Substance: ONDANSETRON
     Dosage: UNK
     Dates: start: 20160808
  17. MULTIVITAMIN [Concomitant]
     Active Substance: VITAMINS
     Dosage: UNK
     Dates: start: 20160808
  18. CRANBERRY. [Concomitant]
     Active Substance: CRANBERRY
     Dosage: UNK
     Dates: start: 20160808
  19. DIPHENHYDRAMINE CITRATE W/PARACETAMOL [Concomitant]
     Active Substance: ACETAMINOPHEN\DIPHENHYDRAMINE CITRATE
     Dosage: UNK
     Dates: start: 20160808
  20. METOPROLOL. [Concomitant]
     Active Substance: METOPROLOL
  21. RANITIDINE. [Concomitant]
     Active Substance: RANITIDINE
     Dosage: UNK
     Dates: start: 20160808
  22. ZOLPIDEM [Concomitant]
     Active Substance: ZOLPIDEM\ZOLPIDEM TARTRATE
     Dosage: UNK
     Dates: start: 20160808
  23. VELETRI [Suspect]
     Active Substance: EPOPROSTENOL
     Indication: PULMONARY ARTERIAL HYPERTENSION
     Dosage: 17 NG/KG, PER MIN
     Route: 042
     Dates: start: 20150706
  24. TRIAMCINOLONE [Concomitant]
     Active Substance: TRIAMCINOLONE
  25. ATORVASTATIN [Concomitant]
     Active Substance: ATORVASTATIN
     Dosage: UNK
     Dates: start: 20180808
  26. D-MANNOSE [Concomitant]
     Dosage: UNK
     Dates: start: 20160808
  27. FEXOFENADINE [Concomitant]
     Active Substance: FEXOFENADINE\FEXOFENADINE HYDROCHLORIDE
     Dosage: UNK
     Dates: start: 20160808
  28. GLUCOSAMINE + CHONDROITIN [Concomitant]
     Dosage: UNK
     Dates: start: 20160808

REACTIONS (27)
  - Decreased appetite [Recovered/Resolved]
  - Catheter management [Unknown]
  - Haemoglobin decreased [Not Recovered/Not Resolved]
  - Pulmonary mass [Not Recovered/Not Resolved]
  - Weight decreased [Recovering/Resolving]
  - Sepsis [Unknown]
  - Pulmonary arterial hypertension [Unknown]
  - Ear pain [Unknown]
  - Chills [Recovered/Resolved]
  - Cough [Recovered/Resolved]
  - Fatigue [Recovered/Resolved]
  - Night sweats [Recovered/Resolved]
  - Urinary tract infection [Recovered/Resolved]
  - Dyspnoea exertional [Recovered/Resolved]
  - Iron deficiency [Not Recovered/Not Resolved]
  - Lymphadenopathy mediastinal [Not Recovered/Not Resolved]
  - Dehydration [Unknown]
  - Drug intolerance [Unknown]
  - Blood culture positive [Recovered/Resolved]
  - Condition aggravated [Unknown]
  - Bacteraemia [Recovered/Resolved]
  - Upper respiratory tract infection [Unknown]
  - Vascular device infection [Recovered/Resolved]
  - Normocytic anaemia [Not Recovered/Not Resolved]
  - Dyspnoea [Not Recovered/Not Resolved]
  - Oropharyngeal pain [Unknown]
  - Bronchitis [Unknown]

NARRATIVE: CASE EVENT DATE: 201510
